FAERS Safety Report 11993296 (Version 2)
Quarter: 2016Q1

REPORT INFORMATION
  Report Type: Report from Study
  Country: IT (occurrence: IT)
  Receive Date: 20160203
  Receipt Date: 20160222
  Transmission Date: 20160526
  Serious: Yes (Death, Hospitalization)
  Sender: FDA-Public Use
  Company Number: PHHY2013IT175967

PATIENT
  Age: 60 Year
  Sex: Male

DRUGS (12)
  1. TOSTREX [Concomitant]
     Active Substance: TESTOSTERONE
     Indication: HYPOPITUITARISM
     Route: 065
     Dates: start: 2012
  2. TRITTICO [Concomitant]
     Active Substance: TRAZODONE HYDROCHLORIDE
     Indication: PRODUCT USED FOR UNKNOWN INDICATION
     Dosage: 20 DRP, UNK
     Route: 048
  3. PANTOPRAZOLE [Concomitant]
     Active Substance: PANTOPRAZOLE SODIUM
     Indication: PRODUCT USED FOR UNKNOWN INDICATION
     Dosage: 20 MG, UNK
     Route: 048
  4. EUTIROX [Concomitant]
     Active Substance: LEVOTHYROXINE SODIUM
     Indication: HYPOPITUITARISM
     Route: 065
     Dates: start: 2005
  5. LOSARTAN + HIDROCLOROTIAZIDA       /01284801/ [Concomitant]
     Indication: HYPERTENSION
     Route: 065
     Dates: start: 2004
  6. CARDURA [Concomitant]
     Active Substance: DOXAZOSIN MESYLATE
     Indication: HYPERTENSION
     Route: 065
     Dates: start: 2004
  7. CALCIUM + VITAMIN D                /00944201/ [Concomitant]
     Active Substance: CALCIUM\VITAMIN D
     Indication: HYPOPARATHYROIDISM
     Route: 065
     Dates: start: 2005
  8. SOM230 [Suspect]
     Active Substance: PASIREOTIDE
     Indication: ACROMEGALY
  9. CORTONE [Concomitant]
     Active Substance: CORTISONE ACETATE
     Indication: HYPOPITUITARISM
     Route: 065
     Dates: start: 2006
  10. METFORMIN [Concomitant]
     Active Substance: METFORMIN HYDROCHLORIDE
     Indication: DIABETES MELLITUS
     Route: 065
     Dates: start: 201303
  11. XANAX [Concomitant]
     Active Substance: ALPRAZOLAM
     Indication: PRODUCT USED FOR UNKNOWN INDICATION
     Dosage: 15 DRP, UNK
     Route: 048
  12. SOM230 [Suspect]
     Active Substance: PASIREOTIDE
     Indication: PITUITARY-DEPENDENT CUSHING^S SYNDROME
     Dosage: 40 MG, QMO
     Route: 058
     Dates: start: 20130402, end: 20130820

REACTIONS (2)
  - Disease progression [Fatal]
  - Diabetes mellitus [Recovering/Resolving]

NARRATIVE: CASE EVENT DATE: 20130623
